FAERS Safety Report 15721222 (Version 21)
Quarter: 2019Q3

REPORT INFORMATION
  Report Type: Spontaneous
  Country: CA (occurrence: CA)
  Receive Date: 20181214
  Receipt Date: 20190927
  Transmission Date: 20191004
  Serious: Yes (Other)
  Sender: FDA-Public Use
  Company Number: CA-ROCHE-2228974

PATIENT
  Age: 72 Year
  Sex: Female

DRUGS (17)
  1. XOLAIR [Suspect]
     Active Substance: OMALIZUMAB
     Route: 058
     Dates: start: 20180711
  2. PERINDOPRIL [Concomitant]
     Active Substance: PERINDOPRIL
     Indication: BLOOD PRESSURE ABNORMAL
     Route: 048
     Dates: start: 2012
  3. CALCIUM CARBONATE. [Concomitant]
     Active Substance: CALCIUM CARBONATE
     Indication: PRODUCT USED FOR UNKNOWN INDICATION
     Route: 048
  4. XOLAIR [Suspect]
     Active Substance: OMALIZUMAB
     Route: 058
     Dates: start: 20190326
  5. XOLAIR [Suspect]
     Active Substance: OMALIZUMAB
     Route: 058
     Dates: start: 20190221
  6. XOLAIR [Suspect]
     Active Substance: OMALIZUMAB
     Route: 058
     Dates: start: 20190710
  7. XOLAIR [Suspect]
     Active Substance: OMALIZUMAB
     Route: 058
     Dates: start: 20180808
  8. XOLAIR [Suspect]
     Active Substance: OMALIZUMAB
     Route: 058
     Dates: start: 20181003
  9. XOLAIR [Suspect]
     Active Substance: OMALIZUMAB
     Route: 058
     Dates: start: 20181106
  10. XOLAIR [Suspect]
     Active Substance: OMALIZUMAB
     Route: 058
     Dates: start: 20190612
  11. XOLAIR [Suspect]
     Active Substance: OMALIZUMAB
     Indication: CHRONIC SPONTANEOUS URTICARIA
     Route: 058
     Dates: start: 20180613
  12. XOLAIR [Suspect]
     Active Substance: OMALIZUMAB
     Route: 058
     Dates: start: 20190417
  13. CHOLECALCIFEROL [Concomitant]
     Active Substance: CHOLECALCIFEROL
     Indication: PRODUCT USED FOR UNKNOWN INDICATION
     Route: 048
  14. CODEINE [Concomitant]
     Active Substance: CODEINE
  15. VITAMIN C [Concomitant]
     Active Substance: ASCORBIC ACID
     Indication: ANTIOXIDANT THERAPY
     Route: 048
  16. XOLAIR [Suspect]
     Active Substance: OMALIZUMAB
     Route: 058
     Dates: start: 20180905
  17. XOLAIR [Suspect]
     Active Substance: OMALIZUMAB
     Route: 058
     Dates: start: 20190515

REACTIONS (22)
  - Bronchitis [Unknown]
  - Headache [Unknown]
  - Urinary tract infection [Unknown]
  - Depressed mood [Unknown]
  - Skin plaque [Not Recovered/Not Resolved]
  - Rash [Unknown]
  - Nasopharyngitis [Unknown]
  - Dermatitis [Not Recovered/Not Resolved]
  - Pain [Unknown]
  - Sinusitis [Not Recovered/Not Resolved]
  - Injection site haemorrhage [Unknown]
  - Pruritus [Recovering/Resolving]
  - Inappropriate schedule of product administration [Unknown]
  - Erythema [Unknown]
  - Swelling [Unknown]
  - Urticaria [Not Recovered/Not Resolved]
  - Weight decreased [Unknown]
  - Fatigue [Unknown]
  - Dysuria [Unknown]
  - Acne [Unknown]
  - Burning sensation [Unknown]
  - Cough [Unknown]

NARRATIVE: CASE EVENT DATE: 20180613
